FAERS Safety Report 17907684 (Version 2)
Quarter: 2020Q3

REPORT INFORMATION
  Report Type: Report from Study
  Country: None (occurrence: US)
  Receive Date: 20200617
  Receipt Date: 20200824
  Transmission Date: 20201103
  Serious: Yes (Hospitalization, Other)
  Sender: FDA-Public Use
  Company Number: US-ABBVIE-19K-163-2794884-00

PATIENT
  Sex: Female
  Weight: 64.01 kg

DRUGS (1)
  1. HUMIRA [Suspect]
     Active Substance: ADALIMUMAB
     Indication: COLITIS ULCERATIVE
     Route: 058

REACTIONS (10)
  - Arthritis [Unknown]
  - Dehydration [Recovered/Resolved]
  - Osteoarthritis [Unknown]
  - Pneumonia [Recovered/Resolved]
  - Hypotension [Recovered/Resolved]
  - Pain [Unknown]
  - Haematochezia [Unknown]
  - Septic shock [Recovered/Resolved]
  - Malaise [Not Recovered/Not Resolved]
  - Weight decreased [Not Recovered/Not Resolved]
